FAERS Safety Report 6141567-5 (Version None)
Quarter: 2009Q2

REPORT INFORMATION
  Report Type: 
  Country: None (occurrence: None)
  Receive Date: 20090402
  Receipt Date: 20090324
  Transmission Date: 20091009
  Serious: Yes (Death)
  Sender: FDA-Public Use
  Company Number: A0764818A

PATIENT
  Age: 80 Year
  Sex: Male

DRUGS (12)
  1. AVANDIA [Suspect]
     Dosage: 8MG PER DAY
     Route: 048
     Dates: start: 20030101, end: 20090122
  2. BYETTA [Concomitant]
  3. PLAVIX [Concomitant]
  4. UROXATRAL [Concomitant]
  5. CPAP MACHINE [Concomitant]
  6. ADVAIR HFA [Concomitant]
  7. FLONASE [Concomitant]
  8. CENTRUM SILVER [Concomitant]
  9. VITAMIN B-12 [Concomitant]
     Route: 042
  10. TESTOSTERONE SHOT [Concomitant]
  11. CITRACAL [Concomitant]
  12. VITAMIN D [Concomitant]

REACTIONS (9)
  - ABDOMINAL PAIN UPPER [None]
  - ANOREXIA [None]
  - BACK PAIN [None]
  - CHROMATURIA [None]
  - FATIGUE [None]
  - GASTRIC CANCER [None]
  - INSOMNIA [None]
  - JAUNDICE [None]
  - YELLOW SKIN [None]
